FAERS Safety Report 12884773 (Version 2)
Quarter: 2017Q1

REPORT INFORMATION
  Report Type: Spontaneous
  Country: US (occurrence: US)
  Receive Date: 20161026
  Receipt Date: 20170127
  Transmission Date: 20170428
  Serious: No
  Sender: FDA-Public Use
  Company Number: US-CELGENEUS-USA-2016104593

PATIENT
  Sex: Female

DRUGS (5)
  1. TALTZ [Concomitant]
     Active Substance: IXEKIZUMAB
     Indication: PSORIASIS
     Dosage: 160 MILLIGRAM/SQ. METER
     Route: 058
  2. TALTZ [Concomitant]
     Active Substance: IXEKIZUMAB
     Dosage: 2.8571 MILLIGRAM/SQ. METER
     Route: 058
  3. TRIANEX [Concomitant]
     Active Substance: TRIAMCINOLONE ACETONIDE
     Indication: PRODUCT USED FOR UNKNOWN INDICATION
     Route: 065
  4. OTEZLA [Suspect]
     Active Substance: APREMILAST
     Indication: PSORIASIS
     Dosage: 60 MILLIGRAM
     Route: 048
     Dates: end: 20161017
  5. TALTZ [Concomitant]
     Active Substance: IXEKIZUMAB
     Dosage: 5.7143 MILLIGRAM/SQ. METER
     Route: 058

REACTIONS (2)
  - Psoriasis [Unknown]
  - Drug ineffective [Unknown]
